FAERS Safety Report 4864462-8 (Version None)
Quarter: 2005Q4

REPORT INFORMATION
  Report Type: 
  Country: None (occurrence: None)
  Receive Date: 20051222
  Receipt Date: 20051213
  Transmission Date: 20060501
  Serious: Yes (Other)
  Sender: FDA-Public Use
  Company Number: FR-BRISTOL-MYERS SQUIBB COMPANY-13224837

PATIENT
  Sex: Female

DRUGS (2)
  1. HOLOXAN [Suspect]
     Indication: ACCIDENTAL EXPOSURE
     Dates: start: 20051125, end: 20051125
  2. ONCOVIN [Suspect]
     Indication: ACCIDENTAL EXPOSURE
     Dates: start: 20051125, end: 20051125

REACTIONS (5)
  - ACCIDENTAL EXPOSURE [None]
  - CYSTITIS HAEMORRHAGIC [None]
  - EYE IRRITATION [None]
  - HEADACHE [None]
  - RESPIRATORY TRACT IRRITATION [None]
